FAERS Safety Report 5894219-0 (Version None)
Quarter: 2008Q3

REPORT INFORMATION
  Report Type: 
  Country: None (occurrence: None)
  Receive Date: 20080923
  Receipt Date: 20080225
  Transmission Date: 20090109
  Serious: No
  Sender: FDA-Public Use
  Company Number: US-ASTRAZENECA-2008UW03874

PATIENT
  Age: 43 Year
  Sex: Female
  Weight: 97.5 kg

DRUGS (3)
  1. SEROQUEL [Suspect]
     Route: 048
     Dates: start: 20070201
  2. CELEXA [Concomitant]
  3. LEXAPRO [Concomitant]

REACTIONS (6)
  - BONE PAIN [None]
  - HYPOAESTHESIA [None]
  - INCREASED APPETITE [None]
  - INFLUENZA LIKE ILLNESS [None]
  - MYALGIA [None]
  - PARAESTHESIA [None]
